FAERS Safety Report 4291698-X (Version None)
Quarter: 2004Q1

REPORT INFORMATION
  Report Type: 
  Country: None (occurrence: None)
  Receive Date: 20040211
  Receipt Date: 20021014
  Transmission Date: 20041129
  Serious: No
  Sender: FDA-Public Use
  Company Number: US-GLAXOSMITHKLINE-A0383327A

PATIENT
  Age: 15 Year
  Sex: Male

DRUGS (5)
  1. IMITREX [Suspect]
     Indication: MIGRAINE
     Dosage: 6MG AS DIRECTED
     Route: 058
     Dates: start: 20020501
  2. VICODIN [Suspect]
  3. KEPPRA [Concomitant]
  4. CELEXA [Concomitant]
  5. VITAMIN B2 [Concomitant]

REACTIONS (5)
  - ABDOMINAL PAIN UPPER [None]
  - DRUG INEFFECTIVE [None]
  - NAUSEA [None]
  - PHARMACEUTICAL PRODUCT COMPLAINT [None]
  - VOMITING [None]
